FAERS Safety Report 20799336 (Version 11)
Quarter: 2024Q1

REPORT INFORMATION
  Report Type: Other
  Country: DE (occurrence: None)
  Receive Date: 20220508
  Receipt Date: 20240315
  Transmission Date: 20240409
  Serious: Yes (Other)
  Sender: FDA-Public Use
  Company Number: DE-ROCHE-2836902

PATIENT
  Age: 48 Year
  Sex: Female

DRUGS (9)
  1. OCREVUS [Suspect]
     Active Substance: OCRELIZUMAB
     Indication: Secondary progressive multiple sclerosis
     Route: 042
     Dates: start: 20201006
  2. OCREVUS [Suspect]
     Active Substance: OCRELIZUMAB
     Indication: Primary progressive multiple sclerosis
     Dosage: FIRST MAINTENANCE DOSE
     Route: 042
     Dates: start: 20210419
  3. OCREVUS [Suspect]
     Active Substance: OCRELIZUMAB
     Dosage: SECOND MAINTENANCE DOSE
     Route: 042
     Dates: start: 20211013
  4. OCREVUS [Suspect]
     Active Substance: OCRELIZUMAB
     Dosage: 6TH MAINTANANCE DOSE
     Route: 042
     Dates: start: 20231130
  5. COMIRNATY (TOZINAMERAN) [Suspect]
     Active Substance: TOZINAMERAN
     Indication: Product used for unknown indication
     Route: 065
  6. CORTISONE [Suspect]
     Active Substance: CORTISONE
     Indication: Premedication
     Route: 065
  7. IBUPROFEN [Concomitant]
     Active Substance: IBUPROFEN
  8. NOVALGIN (METAMIZOLE SODIUM) [Concomitant]
     Active Substance: METAMIZOLE SODIUM
  9. CORTISONE [Concomitant]
     Active Substance: CORTISONE

REACTIONS (27)
  - Dry throat [Recovered/Resolved]
  - Cough [Recovered/Resolved]
  - Erythema [Recovered/Resolved]
  - Feeling hot [Not Recovered/Not Resolved]
  - Fatigue [Not Recovered/Not Resolved]
  - Dizziness [Recovered/Resolved]
  - Nausea [Not Recovered/Not Resolved]
  - Skin burning sensation [Recovered/Resolved]
  - Myalgia [Recovering/Resolving]
  - Neuralgia [Recovering/Resolving]
  - Pain [Recovering/Resolving]
  - Arthralgia [Recovered/Resolved]
  - Headache [Not Recovered/Not Resolved]
  - Pain in extremity [Unknown]
  - Hemiparesis [Unknown]
  - Hypotension [Recovered/Resolved]
  - COVID-19 [Recovered/Resolved]
  - Muscle tightness [Recovering/Resolving]
  - Vision blurred [Not Recovered/Not Resolved]
  - Heart rate increased [Recovered/Resolved]
  - Asthenia [Recovered/Resolved]
  - Incontinence [Not Recovered/Not Resolved]
  - Off label use [Unknown]
  - Sleep disorder [Recovered/Resolved]
  - Gait disturbance [Not Recovered/Not Resolved]
  - Fatigue [Recovered/Resolved]
  - Influenza like illness [Recovered/Resolved]

NARRATIVE: CASE EVENT DATE: 20210419
